FAERS Safety Report 5286734-8 (Version None)
Quarter: 2007Q1

REPORT INFORMATION
  Report Type: 
  Country: None (occurrence: None)
  Receive Date: 20070329
  Receipt Date: 20070326
  Transmission Date: 20070707
  Serious: Yes (Death)
  Sender: FDA-Public Use
  Company Number: 2007S1000061

PATIENT
  Age: 2 Day
  Sex: Male

DRUGS (9)
  1. NITRIC OXIDE [Suspect]
     Indication: LUNG DISORDER
     Dosage: 5 PPM; CONT; INH
     Route: 055
     Dates: start: 20070324, end: 20070325
  2. NITRIC OXIDE [Suspect]
     Indication: PROPHYLAXIS
     Dosage: 5 PPM; CONT; INH
     Route: 055
     Dates: start: 20070324, end: 20070325
  3. AMPICILLIN [Concomitant]
  4. GENTAMICIN [Concomitant]
  5. FENTANYL [Concomitant]
  6. MIDAZOLAM HCL [Concomitant]
  7. DOPAMINE HCL [Concomitant]
  8. DOBUTAMINE (DOBUTAMINE) [Concomitant]
  9. INSULIN (INSULIN) [Concomitant]

REACTIONS (3)
  - BRADYCARDIA NEONATAL [None]
  - CEREBRAL HAEMORRHAGE NEONATAL [None]
  - NEONATAL HYPOTENSION [None]
